FAERS Safety Report 6060396-4 (Version None)
Quarter: 2009Q1

REPORT INFORMATION
  Report Type: 
  Country: None (occurrence: None)
  Receive Date: 20090127
  Receipt Date: 20090127
  Transmission Date: 20090719
  Serious: Yes (Hospitalization)
  Sender: FDA-Public Use
  Company Number: None

PATIENT
  Age: 37 Year
  Sex: Male
  Weight: 114 kg

DRUGS (1)
  1. PREDNISONE [Suspect]
     Dosage: 100MG DAILY PO
     Route: 048

REACTIONS (6)
  - GASTROINTESTINAL HAEMORRHAGE [None]
  - HAEMATEMESIS [None]
  - JEJUNAL ULCER [None]
  - MELAENA [None]
  - NAUSEA [None]
  - VOMITING [None]
